FAERS Safety Report 13144602 (Version 1)
Quarter: 2017Q1

REPORT INFORMATION
  Report Type: Spontaneous
  Country: US (occurrence: US)
  Receive Date: 20170124
  Receipt Date: 20170124
  Transmission Date: 20170428
  Serious: No
  Sender: FDA-Public Use
  Company Number: US-TEVA-725516ACC

PATIENT
  Age: 29 Year
  Sex: Female

DRUGS (1)
  1. PARAGARD T 380A [Suspect]
     Active Substance: COPPER
     Dates: start: 2008, end: 20161221

REACTIONS (4)
  - Vaginal haemorrhage [Unknown]
  - Complication associated with device [Unknown]
  - Device breakage [Unknown]
  - Metrorrhagia [Unknown]
